FAERS Safety Report 5287641-7 (Version None)
Quarter: 2007Q1

REPORT INFORMATION
  Report Type: 
  Country: None (occurrence: None)
  Receive Date: 20070105
  Receipt Date: 20061012
  Transmission Date: 20070707
  Serious: Yes (Other)
  Sender: FDA-Public Use
  Company Number: US-JNJFOC-20061003110

PATIENT
  Sex: Female

DRUGS (3)
  1. ULTRAM ER [Suspect]
     Indication: DRUG USE FOR UNKNOWN INDICATION
     Dosage: 100 MG, 1 IN 1 DAY
  2. ULTRAM [Suspect]
     Indication: DRUG USE FOR UNKNOWN INDICATION
  3. PAXIL [Concomitant]

REACTIONS (1)
  - CONVULSION [None]
